FAERS Safety Report 18815810 (Version 1)
Quarter: 2021Q1

REPORT INFORMATION
  Report Type: Spontaneous
  Country: US (occurrence: US)
  Receive Date: 20210201
  Receipt Date: 20210201
  Transmission Date: 20210419
  Serious: Yes (Life-Threatening, Hospitalization, Disabling, Other)
  Sender: FDA-Public Use
  Company Number: None

PATIENT
  Age: 42 Year
  Sex: Female
  Weight: 121.5 kg

DRUGS (8)
  1. DEXAMETHASONE. [Concomitant]
     Active Substance: DEXAMETHASONE
  2. LEVOFLOXACIN. [Concomitant]
     Active Substance: LEVOFLOXACIN
  3. VITAMIN C [Concomitant]
     Active Substance: ASCORBIC ACID
  4. BENZONATATE. [Concomitant]
     Active Substance: BENZONATATE
  5. VITD3 [Concomitant]
  6. ZNZYME [Concomitant]
  7. BAMLANIVIMAB. [Suspect]
     Active Substance: BAMLANIVIMAB
     Indication: COVID-19
     Dosage: ?          QUANTITY:1 INJECTION(S);OTHER FREQUENCY:ONE TIME DOSE;?
     Route: 042
     Dates: start: 20210122, end: 20210122
  8. OXYGEN. [Concomitant]
     Active Substance: OXYGEN

REACTIONS (4)
  - Dyspnoea [None]
  - Body temperature increased [None]
  - Haematemesis [None]
  - Oxygen saturation decreased [None]

NARRATIVE: CASE EVENT DATE: 20210123
